FAERS Safety Report 8986735 (Version 1)
Quarter: 2012Q4

REPORT INFORMATION
  Report Type: 
  Country: FR (occurrence: FR)
  Receive Date: 20121226
  Receipt Date: 20121226
  Transmission Date: 20130627
  Serious: Yes (Hospitalization)
  Sender: FDA-Public Use
  Company Number: FR-ROCHE-1173645

PATIENT
  Age: 68 Year
  Sex: Female

DRUGS (9)
  1. ACTILYSE [Suspect]
     Indication: ISCHAEMIC STROKE
     Route: 042
     Dates: start: 20121029, end: 20121029
  2. PLAVIX [Concomitant]
     Route: 065
     Dates: start: 201209
  3. KARDEGIC [Concomitant]
     Indication: ISCHAEMIC HEART DISEASE PROPHYLAXIS
  4. TAHOR [Concomitant]
     Route: 048
  5. RAMIPRIL [Concomitant]
     Indication: HYPERTENSION
     Route: 048
  6. LASILIX [Concomitant]
     Indication: HYPERTENSION
     Route: 048
  7. INSPRA [Concomitant]
     Indication: HYPERTENSION
     Route: 048
  8. EFIENT [Concomitant]
     Indication: ARTERIAL THROMBOSIS
  9. BISOPROLOL [Concomitant]
     Indication: HYPERTENSION
     Route: 048

REACTIONS (6)
  - Angioedema [Recovered/Resolved]
  - Pruritus [Recovered/Resolved]
  - Dyspnoea [Recovered/Resolved]
  - Hypotension [Recovered/Resolved]
  - Anaphylactic shock [Recovered/Resolved]
  - Angioedema [Recovered/Resolved]
